FAERS Safety Report 4331615-7 (Version None)
Quarter: 2004Q1

REPORT INFORMATION
  Report Type: 
  Country: None (occurrence: None)
  Receive Date: 20040331
  Receipt Date: 20040310
  Transmission Date: 20041129
  Serious: Yes (Hospitalization, Other)
  Sender: FDA-Public Use
  Company Number: JP_030400839

PATIENT
  Age: 51 Year
  Sex: Male
  Weight: 72 kg

DRUGS (6)
  1. GEMCITABINE HYDROCHLORIDE-IV (GEMCITABINE) [Suspect]
     Indication: NON-SMALL CELL LUNG CANCER
     Dosage: 1000 MG/M2/OTHER
     Route: 050
     Dates: start: 20010405, end: 20010419
  2. TAXOTERE [Concomitant]
  3. PRAVASTATIN [Concomitant]
  4. METHYCOBAL (MECOBALAMIN) [Concomitant]
  5. EXCEGRAN (ZONISAMIDE) [Concomitant]
  6. MUCOSTA (REBAMIPIDE) [Concomitant]

REACTIONS (8)
  - ALANINE AMINOTRANSFERASE INCREASED [None]
  - ANAEMIA [None]
  - ASPARTATE AMINOTRANSFERASE INCREASED [None]
  - C-REACTIVE PROTEIN INCREASED [None]
  - DISEASE PROGRESSION [None]
  - LEUKOPENIA [None]
  - LIVER DISORDER [None]
  - NEUTROPENIA [None]
